FAERS Safety Report 8534730-7 (Version None)
Quarter: 2012Q3

REPORT INFORMATION
  Report Type: 
  Country: None (occurrence: None)
  Receive Date: 20120724
  Receipt Date: 20120719
  Transmission Date: 20120928
  Serious: Yes (Hospitalization)
  Sender: FDA-Public Use
  Company Number: JP-GLAXOSMITHKLINE-B0804213A

PATIENT
  Sex: Female

DRUGS (7)
  1. LAMICTAL [Suspect]
     Indication: BIPOLAR DISORDER RELAPSE PROPHYLAXIS
     Dosage: 25MG PER DAY
     Route: 048
     Dates: start: 20120510, end: 20120521
  2. ABILIFY [Concomitant]
     Indication: MANIA
     Dosage: 24MG PER DAY
     Route: 048
     Dates: start: 20120414
  3. ZOTEPINE [Concomitant]
     Indication: SEDATION
     Dosage: 100MG PER DAY
     Route: 048
  4. ABILIFY [Concomitant]
     Dosage: 12MG PER DAY
     Route: 048
  5. ZOTEPINE [Concomitant]
     Route: 048
     Dates: end: 20120524
  6. ABILIFY [Concomitant]
     Dosage: 6MG PER DAY
     Route: 048
  7. NITRAZEPAM [Concomitant]
     Indication: INSOMNIA
     Dosage: 5MG PER DAY
     Route: 048
     Dates: end: 20120521

REACTIONS (5)
  - MUSCLE RIGIDITY [None]
  - PARKINSON'S DISEASE [None]
  - PERFORMANCE STATUS DECREASED [None]
  - BLOOD CREATINE PHOSPHOKINASE INCREASED [None]
  - TREMOR [None]
